FAERS Safety Report 4406333-7 (Version None)
Quarter: 2004Q3

REPORT INFORMATION
  Report Type: 
  Country: None (occurrence: None)
  Receive Date: 20040723
  Receipt Date: 20030623
  Transmission Date: 20050211
  Serious: No
  Sender: FDA-Public Use
  Company Number: US-GLAXOSMITHKLINE-A0413625A

PATIENT
  Age: 85 Year
  Sex: Female

DRUGS (6)
  1. AVANDIA [Suspect]
     Dosage: 4MG PER DAY
     Route: 048
     Dates: start: 20030604
  2. FUROSAMIDE [Concomitant]
  3. GLIPIZIDE [Concomitant]
  4. SINEMET [Concomitant]
  5. POTASSIUM [Concomitant]
  6. PRINIVIL [Concomitant]

REACTIONS (4)
  - ABDOMINAL PAIN UPPER [None]
  - ASTHENIA [None]
  - NAUSEA [None]
  - OEDEMA PERIPHERAL [None]
